FAERS Safety Report 19653454 (Version 4)
Quarter: 2021Q3

REPORT INFORMATION
  Report Type: Other
  Country: JP (occurrence: JP)
  Receive Date: 20210803
  Receipt Date: 20210917
  Transmission Date: 20211014
  Serious: Yes (Death, Other)
  Sender: FDA-Public Use
  Company Number: JP-ROCHE-2882602

PATIENT
  Age: 58 Year
  Sex: Male

DRUGS (7)
  1. ACTEMRA [Suspect]
     Active Substance: TOCILIZUMAB
     Indication: COVID-19
     Route: 065
     Dates: start: 20201128, end: 20201130
  2. DEXAMETHASONE. [Suspect]
     Active Substance: DEXAMETHASONE
     Indication: COVID-19
     Dosage: UNK
     Route: 065
  3. METHYLPREDNISOLONE. [Suspect]
     Active Substance: METHYLPREDNISOLONE
     Indication: COVID-19
     Route: 041
     Dates: start: 20201126, end: 20201128
  4. FAVIPIRAVIR [Concomitant]
     Active Substance: FAVIPIRAVIR
     Dates: start: 20201130, end: 20201130
  5. METHYLPREDNISOLONE. [Suspect]
     Active Substance: METHYLPREDNISOLONE
     Route: 041
     Dates: start: 20201129, end: 20201201
  6. REMDESIVIR. [Concomitant]
     Active Substance: REMDESIVIR
     Indication: COVID-19
     Dosage: UNK
     Route: 065
     Dates: start: 20201127, end: 20201127
  7. REMDESIVIR. [Concomitant]
     Active Substance: REMDESIVIR
     Dates: start: 20201128, end: 20201128

REACTIONS (6)
  - Multiple organ dysfunction syndrome [Fatal]
  - Disseminated mucormycosis [Fatal]
  - Sepsis [Fatal]
  - Pancreatitis acute [Fatal]
  - Acute kidney injury [Recovering/Resolving]
  - Off label use [Unknown]

NARRATIVE: CASE EVENT DATE: 20201130
